FAERS Safety Report 18441916 (Version 1)
Quarter: 2020Q4

REPORT INFORMATION
  Report Type: Spontaneous
  Country: US (occurrence: US)
  Receive Date: 20201029
  Receipt Date: 20201029
  Transmission Date: 20210114
  Serious: Yes (Hospitalization)
  Sender: FDA-Public Use
  Company Number: US-009507513-2010USA009800

PATIENT
  Age: 60 Year
  Sex: Female

DRUGS (26)
  1. DOCUSATE SODIUM. [Concomitant]
     Active Substance: DOCUSATE SODIUM
     Dosage: TEXT:UNKNOWN-FREQ:UNKNOWN
     Route: 065
  2. LORAZEPAM. [Concomitant]
     Active Substance: LORAZEPAM
     Dosage: TEXT:UNKNOWN-FREQ:UNKNOWN
     Route: 065
  3. ACETAMINOPHEN. [Concomitant]
     Active Substance: ACETAMINOPHEN
     Dosage: TEXT:UNKNOWN-FREQ:UNKNOWN
     Route: 065
  4. BACITRACIN. [Concomitant]
     Active Substance: BACITRACIN
     Dosage: TEXT:UNKNOWN-FREQ:UNKNOWN
     Route: 065
  5. PAROXETINE HYDROCHLORIDE. [Suspect]
     Active Substance: PAROXETINE HYDROCHLORIDE
     Indication: ILL-DEFINED DISORDER
     Dosage: 10 MILLIGRAM
  6. METOPROLOL. [Suspect]
     Active Substance: METOPROLOL
     Indication: ILL-DEFINED DISORDER
     Dosage: TEXT:UNKNOWN-FREQ:UNKNOWN
     Route: 065
  7. PANTOPRAZOLE [Concomitant]
     Active Substance: PANTOPRAZOLE
     Dosage: TEXT:UNKNOWN-FREQ:UNKNOWN
     Route: 065
  8. ISOPHANE INSULIN [Concomitant]
     Active Substance: INSULIN NOS
     Dosage: TEXT:UNKNOWN-FREQ:UNKNOWN
     Route: 065
  9. METOCLOPRAMIDE. [Concomitant]
     Active Substance: METOCLOPRAMIDE
     Dosage: TEXT:UNKNOWN-FREQ:UNKNOWN
     Route: 065
  10. ASPIRIN. [Concomitant]
     Active Substance: ASPIRIN
     Dosage: TEXT:UNKNOWN-FREQ:UNKNOWN
     Route: 065
  11. TRIAMCINOLONE [Concomitant]
     Active Substance: TRIAMCINOLONE
     Dosage: TEXT:UNKNOWN-FREQ:UNKNOWN
     Route: 065
  12. HYDROCORTISONE. [Concomitant]
     Active Substance: HYDROCORTISONE
     Dosage: TEXT:UNKNOWN-FREQ:UNKNOWN
     Route: 054
  13. MAGNESIUM HYDROXIDE. [Concomitant]
     Active Substance: MAGNESIUM HYDROXIDE
     Dosage: TEXT:UNKNOWN-FREQ:UNKNOWN
     Route: 065
  14. INSULIN GLARGINE [Concomitant]
     Active Substance: INSULIN GLARGINE
     Dosage: TEXT:UNKNOWN-FREQ:UNKNOWN
     Route: 065
  15. INSULIN LISPRO [Concomitant]
     Active Substance: INSULIN LISPRO
     Dosage: TEXT:UNKNOWN-FREQ:UNKNOWN
     Route: 065
  16. TRIMETHOBENZAMIDE HYDROCHLORIDE. [Concomitant]
     Active Substance: TRIMETHOBENZAMIDE HYDROCHLORIDE
     Dosage: TEXT:UNKNOWN-FREQ:UNKNOWN
     Route: 065
  17. PRAVASTATIN SODIUM. [Suspect]
     Active Substance: PRAVASTATIN SODIUM
     Indication: ILL-DEFINED DISORDER
     Dosage: TEXT:UNKNOWN-FREQ:UNKNOWN
     Route: 065
  18. PHENYTOIN. [Concomitant]
     Active Substance: PHENYTOIN
     Dosage: TEXT:UNKNOWN-FREQ:UNKNOWN
     Route: 065
  19. PRINIVIL [Suspect]
     Active Substance: LISINOPRIL
     Indication: ILL-DEFINED DISORDER
     Dosage: TEXT:UNKNOWN-FREQ:UNKNOWN
     Route: 065
  20. ISOSORBIDE DINITRATE. [Concomitant]
     Active Substance: ISOSORBIDE DINITRATE
     Dosage: TEXT:UNKNOWN-FREQ:UNKNOWN
     Route: 065
  21. SODIUM PHOSPHATE, DIBASIC [Concomitant]
     Active Substance: SODIUM PHOSPHATE, DIBASIC
     Dosage: TEXT:UNKNOWN-FREQ:UNKNOWN
     Route: 065
  22. LINEZOLID. [Suspect]
     Active Substance: LINEZOLID
     Indication: STAPHYLOCOCCAL INFECTION
     Dosage: 600 MILLIGRAM
     Route: 048
     Dates: start: 20041202
  23. NITROGLYCERIN. [Concomitant]
     Active Substance: NITROGLYCERIN
     Dosage: TEXT:UNKNOWN-FREQ:UNKNOWNU
     Route: 060
  24. POLYETHYLENE GLYCOL [Concomitant]
     Active Substance: POLYETHYLENE GLYCOLS
     Dosage: TEXT:UNKNOWN-FREQ:UNKNOWN
     Route: 065
  25. HEPARIN [Concomitant]
     Active Substance: HEPARIN SODIUM
     Dosage: TEXT:UNKNOWN-FREQ:UNKNOWN
     Route: 065
  26. HYDROCODONE BITARTRATE. [Concomitant]
     Active Substance: HYDROCODONE BITARTRATE
     Dosage: TEXT:UNKNOWN-FREQ:UNKNOWN
     Route: 048

REACTIONS (1)
  - Face oedema [Not Recovered/Not Resolved]

NARRATIVE: CASE EVENT DATE: 20041204
